FAERS Safety Report 5195588-X (Version None)
Quarter: 2006Q4

REPORT INFORMATION
  Report Type: 
  Country: None (occurrence: None)
  Receive Date: 20061226
  Receipt Date: 20061226
  Transmission Date: 20070319
  Serious: Yes (Hospitalization)
  Sender: FDA-Public Use
  Company Number: None

PATIENT
  Age: 87 Year
  Sex: Male

DRUGS (9)
  1. GLYBURIDE [Suspect]
     Dosage: 2.5 MG DAILY PO
     Route: 048
     Dates: start: 20040806, end: 20061219
  2. ASPIRIN [Concomitant]
  3. CLOTRIMAZOLE [Concomitant]
  4. FUROSEMIDE [Concomitant]
  5. GLYBURIDE [Concomitant]
  6. SIMVASTATIN [Concomitant]
  7. POTASSIUM CHLORIDE [Concomitant]
  8. FELODIPINE [Concomitant]
  9. TERAZOSIN HCL [Concomitant]

REACTIONS (3)
  - ABDOMINAL DISTENSION [None]
  - FEELING HOT [None]
  - HYPOGLYCAEMIA [None]
